FAERS Safety Report 4874015-3 (Version None)
Quarter: 2006Q1

REPORT INFORMATION
  Report Type: 
  Country: None (occurrence: None)
  Receive Date: 20060106
  Receipt Date: 20050622
  Transmission Date: 20060701
  Serious: Yes (Hospitalization, Other)
  Sender: FDA-Public Use
  Company Number: 200515273US

PATIENT
  Age: 76 Year
  Sex: Female
  Weight: 85.9 kg

DRUGS (11)
  1. LOVENOX [Suspect]
     Indication: MYOCARDIAL INFARCTION
     Dosage: DOSE: NOT PROVIDED
  2. ADVAIR DISKUS 250/50 [Concomitant]
     Dosage: DOSE: NOT PROVIDED
  3. QUINAPRIL [Concomitant]
     Dosage: DOSE: NOT PROVIDED
  4. LIPITOR [Concomitant]
     Dosage: DOSE: NOT PROVIDED
  5. LASIX [Concomitant]
     Dosage: DOSE: NOT PROVIDED
  6. COREG [Concomitant]
     Dosage: DOSE: NOT PROVIDED
  7. GLYBURIDE [Concomitant]
     Dosage: DOSE: NOT PROVIDED
  8. COMBIVENT [Concomitant]
     Dosage: DOSE: NOT PROVIDED
  9. DYNACIRC [Concomitant]
     Dosage: DOSE: NOT PROVIDED
  10. SINGULAIR [Concomitant]
     Dosage: DOSE: NOT PROVIDED
  11. ASPIRIN [Concomitant]
     Dosage: DOSE: NOT PROVIDED

REACTIONS (16)
  - ABDOMINAL PAIN [None]
  - BLOOD CREATININE INCREASED [None]
  - BLOOD POTASSIUM INCREASED [None]
  - BLOOD UREA INCREASED [None]
  - BRADYCARDIA [None]
  - COMA [None]
  - DYSPNOEA [None]
  - HYPERHIDROSIS [None]
  - HYPOTENSION [None]
  - HYPOVOLAEMIC SHOCK [None]
  - INJECTION SITE HAEMORRHAGE [None]
  - MUSCLE HAEMORRHAGE [None]
  - MYOGLOBIN BLOOD INCREASED [None]
  - PALLOR [None]
  - RENAL FAILURE [None]
  - TROPONIN INCREASED [None]
